FAERS Safety Report 4920422-X (Version None)
Quarter: 2006Q1

REPORT INFORMATION
  Report Type: 
  Country: None (occurrence: None)
  Receive Date: 20060216
  Receipt Date: 20060207
  Transmission Date: 20060701
  Serious: Yes (Other)
  Sender: FDA-Public Use
  Company Number: 2006019607

PATIENT
  Sex: 0

DRUGS (1)
  1. ALDACTONE [Suspect]
     Indication: ILL-DEFINED DISORDER
     Dosage: ORAL
     Route: 048

REACTIONS (2)
  - LUPUS-LIKE SYNDROME [None]
  - PEMPHIGUS [None]
